FAERS Safety Report 19707760 (Version 1)
Quarter: 2021Q3

REPORT INFORMATION
  Report Type: Spontaneous
  Country: US (occurrence: US)
  Receive Date: 20210817
  Receipt Date: 20210817
  Transmission Date: 20211014
  Serious: No
  Sender: FDA-Public Use
  Company Number: US-PFIZER INC-2021580937

PATIENT
  Age: 61 Year
  Sex: Female
  Weight: 70.75 kg

DRUGS (2)
  1. LEVOTHYROXINE. [Concomitant]
     Active Substance: LEVOTHYROXINE
  2. IBRANCE [Suspect]
     Active Substance: PALBOCICLIB
     Indication: BREAST CANCER FEMALE
     Dosage: 125 MG, CYCLIC (14DAYS ON, 7 DAYS OFF)
     Route: 048
     Dates: start: 2019

REACTIONS (3)
  - Alopecia [Unknown]
  - Nausea [Unknown]
  - Diarrhoea [Unknown]
